FAERS Safety Report 18879868 (Version 1)
Quarter: 2021Q1

REPORT INFORMATION
  Report Type: Spontaneous
  Country: DE (occurrence: DE)
  Receive Date: 20210211
  Receipt Date: 20210211
  Transmission Date: 20210420
  Serious: Yes (Hospitalization, Other)
  Sender: FDA-Public Use
  Company Number: DE-TEVA-2021-DE-1877906

PATIENT
  Age: 77 Year
  Sex: Female
  Weight: 60 kg

DRUGS (1)
  1. ATORVASTATIN [Suspect]
     Active Substance: ATORVASTATIN
     Indication: STENT PLACEMENT
     Dosage: 40MG
     Route: 048
     Dates: start: 2019, end: 2020

REACTIONS (2)
  - Quadriparesis [Unknown]
  - Immune-mediated myositis [Unknown]

NARRATIVE: CASE EVENT DATE: 20201201
